FAERS Safety Report 11576861 (Version 1)
Quarter: 2015Q3

REPORT INFORMATION
  Report Type: Spontaneous
  Country: US (occurrence: US)
  Receive Date: 20150930
  Receipt Date: 20150930
  Transmission Date: 20151125
  Serious: No
  Sender: FDA-Public Use
  Company Number: US-EISAI MEDICAL RESEARCH-EC-2015-010643

PATIENT
  Age: 52 Year
  Sex: Female

DRUGS (1)
  1. BELVIQ [Suspect]
     Active Substance: LORCASERIN HYDROCHLORIDE
     Indication: WEIGHT DECREASED
     Route: 048
     Dates: start: 20150529, end: 20150918

REACTIONS (4)
  - Dizziness postural [Not Recovered/Not Resolved]
  - Tremor [Not Recovered/Not Resolved]
  - Feeling jittery [Not Recovered/Not Resolved]
  - Headache [Not Recovered/Not Resolved]

NARRATIVE: CASE EVENT DATE: 20150919
